FAERS Safety Report 8545843-8 (Version None)
Quarter: 2012Q3

REPORT INFORMATION
  Report Type: 
  Country: None (occurrence: None)
  Receive Date: 20120727
  Receipt Date: 20111111
  Transmission Date: 20120928
  Serious: No
  Sender: FDA-Public Use
  Company Number: US-ASTRAZENECA-2011SE68966

PATIENT
  Age: 33 Year
  Sex: Male
  Weight: 83.9 kg

DRUGS (2)
  1. SEROQUEL [Suspect]
     Indication: SLEEP DISORDER
     Route: 048
     Dates: start: 20111025
  2. OPIATES [Suspect]

REACTIONS (7)
  - DRUG WITHDRAWAL SYNDROME [None]
  - OFF LABEL USE [None]
  - FEELING ABNORMAL [None]
  - POOR QUALITY SLEEP [None]
  - INCORRECT DOSE ADMINISTERED [None]
  - YAWNING [None]
  - LETHARGY [None]
